FAERS Safety Report 24237396 (Version 1)
Quarter: 2024Q3

REPORT INFORMATION
  Report Type: Spontaneous
  Country: US (occurrence: US)
  Receive Date: 20240822
  Receipt Date: 20240822
  Transmission Date: 20241017
  Serious: No
  Sender: ROCHE
  Company Number: US-ROCHE-10000062556

PATIENT
  Age: 61 Year
  Sex: Male

DRUGS (1)
  1. ACTEMRA ACTPEN [Suspect]
     Active Substance: TOCILIZUMAB
     Indication: Psoriasis
     Dosage: 162MG/0.9ML
     Route: 058

REACTIONS (3)
  - Fatigue [Unknown]
  - Arthralgia [Unknown]
  - Off label use [Unknown]
